FAERS Safety Report 19974362 (Version 1)
Quarter: 2021Q4

REPORT INFORMATION
  Report Type: Spontaneous
  Country: PL (occurrence: PL)
  Receive Date: 20211020
  Receipt Date: 20211020
  Transmission Date: 20220304
  Serious: Yes (Other)
  Sender: FDA-Public Use
  Company Number: PL-TEVA-2021-PL-1928588

PATIENT
  Age: 13 Year
  Sex: Male

DRUGS (8)
  1. DEXAMETHASONE [Suspect]
     Active Substance: DEXAMETHASONE
     Indication: Primary immunodeficiency syndrome
     Dosage: 1 MILLIGRAM/KILOGRAM
     Route: 065
  2. DEXAMETHASONE [Suspect]
     Active Substance: DEXAMETHASONE
     Indication: Interstitial lung disease
     Dosage: UNK
     Route: 065
  3. MYCOPHENOLATE MOFETIL [Suspect]
     Active Substance: MYCOPHENOLATE MOFETIL
     Indication: Primary immunodeficiency syndrome
     Dosage: 500 MILLIGRAM, QD
     Route: 065
  4. MYCOPHENOLATE MOFETIL [Suspect]
     Active Substance: MYCOPHENOLATE MOFETIL
     Indication: Interstitial lung disease
     Dosage: UNK
     Route: 065
  5. AZATHIOPRINE [Suspect]
     Active Substance: AZATHIOPRINE
     Indication: Primary immunodeficiency syndrome
     Dosage: 2 MILLIGRAM/KILOGRAM
     Route: 065
  6. AZATHIOPRINE [Suspect]
     Active Substance: AZATHIOPRINE
     Indication: Interstitial lung disease
     Dosage: UNK
     Route: 065
  7. PREDNISONE [Suspect]
     Active Substance: PREDNISONE
     Indication: Interstitial lung disease
     Dosage: 0.2 MILLIGRAM/KILOGRAM, MAINTENANCE DOSE
     Route: 065
  8. PREDNISONE [Suspect]
     Active Substance: PREDNISONE
     Indication: Primary immunodeficiency syndrome
     Dosage: 1 MILLIGRAM/KILOGRAM, INITIAL DOSE
     Route: 065

REACTIONS (3)
  - Cushing^s syndrome [Unknown]
  - Pancreatitis [Recovered/Resolved]
  - Drug ineffective [Unknown]
